FAERS Safety Report 21023890 (Version 1)
Quarter: 2022Q3

REPORT INFORMATION
  Report Type: Spontaneous
  Country: IT (occurrence: IT)
  Receive Date: 20220629
  Receipt Date: 20220629
  Transmission Date: 20221026
  Serious: Yes (Other)
  Sender: FDA-Public Use
  Company Number: IT-NOVARTISPH-NVSC2022IT144775

PATIENT
  Age: 70 Year
  Sex: Male

DRUGS (4)
  1. LEVOFLOXACIN [Suspect]
     Active Substance: LEVOFLOXACIN
     Indication: Pneumonitis
     Dosage: 750 MG, QD, WHILST WAITING TO START CHEMOTHERAPY
     Route: 065
  2. PIPERACILLIN SODIUM\TAZOBACTAM SODIUM [Suspect]
     Active Substance: PIPERACILLIN SODIUM\TAZOBACTAM SODIUM
     Indication: Pneumonitis
     Dosage: 1 DOSAGE FORM, TID
     Route: 065
  3. ACETAMINOPHEN [Concomitant]
     Active Substance: ACETAMINOPHEN
     Indication: Back pain
     Dosage: 500 MG, UNKNOWN
     Route: 065
  4. CODEINE [Concomitant]
     Active Substance: CODEINE
     Indication: Back pain
     Dosage: 30 MG, UNKNOWN, AS NEEDED, USUALLY ONCE A DAY FOR NINE DAYS
     Route: 065

REACTIONS (2)
  - Pneumothorax spontaneous [Recovered/Resolved]
  - Product use in unapproved indication [Unknown]
